FAERS Safety Report 19403931 (Version 1)
Quarter: 2021Q2

REPORT INFORMATION
  Report Type: Spontaneous
  Country: US (occurrence: US)
  Receive Date: 20210610
  Receipt Date: 20210610
  Transmission Date: 20210717
  Serious: No
  Sender: FDA-Public Use
  Company Number: US-ROCHE-2779444

PATIENT
  Age: 31 Year
  Sex: Female

DRUGS (1)
  1. ENSPRYNG [Suspect]
     Active Substance: SATRALIZUMAB-MWGE
     Indication: NEUROMYELITIS OPTICA SPECTRUM DISORDER
     Route: 065
     Dates: start: 20210212

REACTIONS (1)
  - Pain [Unknown]

NARRATIVE: CASE EVENT DATE: 20210212
